FAERS Safety Report 5145843-4 (Version None)
Quarter: 2006Q4

REPORT INFORMATION
  Report Type: 
  Country: None (occurrence: None)
  Receive Date: 20061101
  Receipt Date: 20061023
  Transmission Date: 20070319
  Serious: Yes (Other)
  Sender: FDA-Public Use
  Company Number: C-06-0061

PATIENT
  Age: 43 Year
  Sex: Male
  Weight: 68.0396 kg

DRUGS (1)
  1. FERROUS SULFATE TAB [Suspect]
     Indication: SELF-MEDICATION
     Dosage: 2CC, ORALLY (SINGLE DOSE)
     Route: 048
     Dates: start: 20061020

REACTIONS (4)
  - DIZZINESS [None]
  - LETHARGY [None]
  - SELF-MEDICATION [None]
  - SOMNOLENCE [None]
